FAERS Safety Report 18594397 (Version 2)
Quarter: 2021Q4

REPORT INFORMATION
  Report Type: Spontaneous
  Country: IN (occurrence: IN)
  Receive Date: 20201209
  Receipt Date: 20211209
  Transmission Date: 20220303
  Serious: Yes (Death, Other)
  Sender: FDA-Public Use
  Company Number: IN-PFIZER INC-2020484184

PATIENT
  Age: 64 Year
  Sex: Female

DRUGS (1)
  1. SUTENT [Suspect]
     Active Substance: SUNITINIB MALATE
     Indication: Metastatic renal cell carcinoma
     Dosage: 50 MG, 1X/DAY
     Dates: start: 20200729, end: 20201120

REACTIONS (2)
  - Cerebral haemorrhage [Fatal]
  - Neoplasm progression [Fatal]
